FAERS Safety Report 15391072 (Version 2)
Quarter: 2018Q4

REPORT INFORMATION
  Report Type: Report from Study
  Country: CA (occurrence: CA)
  Receive Date: 20180917
  Receipt Date: 20181003
  Transmission Date: 20190204
  Serious: Yes (Hospitalization, Other)
  Sender: FDA-Public Use
  Company Number: CA-UCBSA-2018034782

PATIENT
  Age: 64 Year
  Sex: Male
  Weight: 64 kg

DRUGS (5)
  1. NYSTATIN. [Concomitant]
     Active Substance: NYSTATIN
     Indication: LEUKOPLAKIA
  2. CERTOLIZUMAB PEGOL ASP [Suspect]
     Active Substance: CERTOLIZUMAB PEGOL
     Indication: ANKYLOSING SPONDYLITIS
     Dosage: 400 MG, EV 2 WEEKS(QOW)
     Route: 058
     Dates: start: 20180720, end: 201808
  3. PENICILLIN [Concomitant]
     Active Substance: PENICILLIN
     Indication: PRODUCT USED FOR UNKNOWN INDICATION
  4. CERTOLIZUMAB PEGOL ASP [Suspect]
     Active Substance: CERTOLIZUMAB PEGOL
     Dosage: 400 MG, EV 4 WEEKS
     Route: 058
     Dates: start: 20180901
  5. MOMETASONE [Concomitant]
     Active Substance: MOMETASONE
     Indication: DRY SKIN

REACTIONS (9)
  - Clavicle fracture [Recovering/Resolving]
  - Injection site bruising [Unknown]
  - Hand fracture [Recovering/Resolving]
  - Rib fracture [Recovering/Resolving]
  - Leukoplakia [Not Recovered/Not Resolved]
  - Sinusitis [Recovering/Resolving]
  - Fall [Recovering/Resolving]
  - Dry skin [Not Recovered/Not Resolved]
  - Concussion [Recovering/Resolving]

NARRATIVE: CASE EVENT DATE: 2018
